FAERS Safety Report 26127053 (Version 1)
Quarter: 2025Q4

REPORT INFORMATION
  Report Type: Spontaneous
  Country: US (occurrence: None)
  Receive Date: 20251205
  Receipt Date: 20251205
  Transmission Date: 20260118
  Serious: Yes (unspecified)
  Sender: FDA-CTU
  Company Number: None

PATIENT
  Age: 83 Year
  Sex: Female
  Weight: 91.35 kg

DRUGS (1)
  1. INDOMETHACIN [Suspect]
     Active Substance: INDOMETHACIN
     Indication: Magnetic resonance cholangiopancreatography
     Dosage: 100 MG AS NEEDED RECTAL
     Route: 054
     Dates: start: 20251107, end: 20251107

REACTIONS (2)
  - Pancreatitis [None]
  - Leukocytosis [None]

NARRATIVE: CASE EVENT DATE: 20251107
